FAERS Safety Report 14331923 (Version 3)
Quarter: 2018Q2

REPORT INFORMATION
  Report Type: Spontaneous
  Country: IT (occurrence: IT)
  Receive Date: 20171228
  Receipt Date: 20180503
  Transmission Date: 20180711
  Serious: Yes (Other)
  Sender: FDA-Public Use
  Company Number: IT-BAUSCH-BL-2017-034796

PATIENT
  Age: 63 Year
  Sex: Male

DRUGS (8)
  1. BENDAMUSTINE HYDROCHLORIDE. [Suspect]
     Active Substance: BENDAMUSTINE HYDROCHLORIDE
     Indication: PLASMA CELL MYELOMA
     Dosage: 5 CYCLES; CYCLICAL
     Route: 042
     Dates: start: 20151027, end: 20160321
  2. VELCADE [Suspect]
     Active Substance: BORTEZOMIB
     Dosage: CYCLIC (5 CYCLES)
     Route: 065
  3. VELCADE [Suspect]
     Active Substance: BORTEZOMIB
     Dosage: CYCLIC (2 CYCLES)
     Route: 065
  4. DEXAMETHASONE. [Suspect]
     Active Substance: DEXAMETHASONE
     Indication: PLASMA CELL MYELOMA
     Dosage: 4CYCLES; CYCLICAL
     Route: 065
     Dates: start: 20140505, end: 20140717
  5. DEXAMETHASONE. [Suspect]
     Active Substance: DEXAMETHASONE
     Dosage: 5CYCLES; CYCLICAL
     Route: 065
     Dates: start: 20150727, end: 20151012
  6. VELCADE [Suspect]
     Active Substance: BORTEZOMIB
     Indication: PLASMA CELL MYELOMA
     Dosage: CYCLIC (4 CYCLES)
     Route: 065
     Dates: start: 20140505, end: 20140717
  7. VELCADE [Suspect]
     Active Substance: BORTEZOMIB
     Dosage: CYCLIC (4 CYCLES)
     Route: 065
  8. DEXAMETHASONE. [Suspect]
     Active Substance: DEXAMETHASONE
     Dosage: 4CYCLES; CYCLICAL
     Route: 065
     Dates: start: 20160404, end: 20160627

REACTIONS (2)
  - Plasma cell myeloma [Unknown]
  - Therapeutic response decreased [Unknown]
